FAERS Safety Report 23857516 (Version 1)
Quarter: 2024Q2

REPORT INFORMATION
  Report Type: Spontaneous
  Country: CA (occurrence: CA)
  Receive Date: 20240515
  Receipt Date: 20240515
  Transmission Date: 20240716
  Serious: Yes (Other)
  Sender: FDA-Public Use
  Company Number: CA-PFIZER INC-202400107013

PATIENT
  Age: 42 Year
  Sex: Male

DRUGS (2)
  1. RUXIENCE [Suspect]
     Active Substance: RITUXIMAB-PVVR
     Indication: Thrombocytopenic purpura
     Dosage: 1000 MG, DAY 1
     Route: 042
     Dates: start: 20240511, end: 20240511
  2. RUXIENCE [Suspect]
     Active Substance: RITUXIMAB-PVVR
     Indication: Interstitial lung disease

REACTIONS (4)
  - Hot flush [Recovered/Resolved]
  - Agitation [Recovered/Resolved]
  - Pallor [Recovered/Resolved]
  - Oropharyngeal pain [Recovered/Resolved]

NARRATIVE: CASE EVENT DATE: 20240511
